FAERS Safety Report 7606519-4 (Version None)
Quarter: 2011Q3

REPORT INFORMATION
  Report Type: 
  Country: None (occurrence: None)
  Receive Date: 20110713
  Receipt Date: 20110131
  Transmission Date: 20111222
  Serious: Yes (Death)
  Sender: FDA-Public Use
  Company Number: US-BAYER-200912780NA

PATIENT
  Sex: Male

DRUGS (2)
  1. TRASYLOL [Suspect]
     Indication: CORONARY ARTERY BYPASS
     Route: 042
     Dates: start: 20070709
  2. TRASYLOL [Suspect]
     Indication: MITRAL VALVE REPLACEMENT

REACTIONS (4)
  - INJURY [None]
  - RENAL FAILURE ACUTE [None]
  - PAIN [None]
  - UNEVALUABLE EVENT [None]
